FAERS Safety Report 5350883-6 (Version None)
Quarter: 2007Q2

REPORT INFORMATION
  Report Type: 
  Country: None (occurrence: None)
  Receive Date: 20070608
  Receipt Date: 20070531
  Transmission Date: 20071010
  Serious: Yes (Hospitalization)
  Sender: FDA-Public Use
  Company Number: B0474117A

PATIENT
  Age: 79 Year
  Sex: Female

DRUGS (3)
  1. ZOFRAN [Suspect]
     Route: 042
     Dates: start: 20070221, end: 20070221
  2. NIPENT [Suspect]
     Route: 042
     Dates: start: 20070221, end: 20070221
  3. MABTHERA [Suspect]
     Route: 042
     Dates: start: 20070221, end: 20070221

REACTIONS (5)
  - ACUTE MYOCARDIAL INFARCTION [None]
  - CHOLESTASIS [None]
  - CONDITION AGGRAVATED [None]
  - HEPATOCELLULAR DAMAGE [None]
  - VENTRICULAR FIBRILLATION [None]
